FAERS Safety Report 16789256 (Version 1)
Quarter: 2019Q3

REPORT INFORMATION
  Report Type: Spontaneous
  Country: ES (occurrence: ES)
  Receive Date: 20190910
  Receipt Date: 20190910
  Transmission Date: 20191005
  Serious: Yes (Hospitalization)
  Sender: FDA-Public Use
  Company Number: ES-TEVA-2019-ES-1103377

PATIENT
  Age: 66 Year
  Sex: Female

DRUGS (2)
  1. CICLOFOSFAMIDA (120A) [Suspect]
     Active Substance: CYCLOPHOSPHAMIDE
     Dates: start: 20190514
  2. DOXORUBICINA [Suspect]
     Active Substance: DOXORUBICIN HYDROCHLORIDE
     Dates: start: 20190514

REACTIONS (1)
  - Febrile neutropenia [Recovered/Resolved]

NARRATIVE: CASE EVENT DATE: 20190620
